FAERS Safety Report 9782009 (Version 1)
Quarter: 2013Q4

REPORT INFORMATION
  Report Type: Spontaneous
  Country: US (occurrence: US)
  Receive Date: 20131225
  Receipt Date: 20131225
  Transmission Date: 20140711
  Serious: No
  Sender: FDA-Public Use
  Company Number: US-009507513-1312USA004869

PATIENT
  Age: 67 Year
  Sex: Male

DRUGS (4)
  1. ZIOPTAN [Suspect]
     Indication: GLAUCOMA
     Dosage: 1 DROP IN EACH EYE AT NIGHT
     Route: 047
     Dates: start: 20131101
  2. ISTALOL [Concomitant]
  3. AVODART [Concomitant]
  4. CELEBREX [Concomitant]

REACTIONS (2)
  - Ocular hyperaemia [Not Recovered/Not Resolved]
  - Vision blurred [Not Recovered/Not Resolved]
